FAERS Safety Report 5359115-6 (Version None)
Quarter: 2007Q2

REPORT INFORMATION
  Report Type: 
  Country: None (occurrence: None)
  Receive Date: 20070530
  Receipt Date: 20070206
  Transmission Date: 20071010
  Serious: No
  Sender: FDA-Public Use
  Company Number: 2007PV029650

PATIENT
  Age: 63 Year
  Sex: Male

DRUGS (6)
  1. BYETTA [Suspect]
     Indication: DIABETES MELLITUS NON-INSULIN-DEPENDENT
     Dosage: 10 MCG BID SC ; 5 MCG BID SC
     Route: 058
     Dates: start: 20061201, end: 20070101
  2. BYETTA [Suspect]
     Indication: DIABETES MELLITUS NON-INSULIN-DEPENDENT
     Dosage: 10 MCG BID SC ; 5 MCG BID SC
     Route: 058
     Dates: start: 20070101
  3. AMARYL [Concomitant]
  4. ACTOS [Concomitant]
  5. BLOOD THINNER [Concomitant]
  6. OTHER MEDICATIONS [Concomitant]

REACTIONS (3)
  - ERUCTATION [None]
  - FLATULENCE [None]
  - HYPERCHLORHYDRIA [None]
